FAERS Safety Report 9688929 (Version 1)
Quarter: 2013Q4

REPORT INFORMATION
  Report Type: Spontaneous
  Country: BR (occurrence: BR)
  Receive Date: 20131114
  Receipt Date: 20131114
  Transmission Date: 20140711
  Serious: Yes (Hospitalization, Other)
  Sender: FDA-Public Use
  Company Number: BR-009507513-1311BRA001097

PATIENT
  Age: 78 Year
  Sex: Female

DRUGS (9)
  1. TEMOZOLOMIDE [Suspect]
     Indication: GLIOBLASTOMA
     Dosage: UNK
     Route: 048
  2. TEMOZOLOMIDE [Suspect]
     Dosage: UNK
     Route: 048
  3. OMEPRAZOLE [Concomitant]
  4. AMLODIPINE [Concomitant]
  5. METFORMIN [Concomitant]
  6. GLICLAZIDE [Concomitant]
  7. SITAGLIPTIN PHOSPHATE [Concomitant]
  8. SULFAMETHOXAZOLE (+) TRIMETHOPRIM [Concomitant]
     Indication: PROPHYLAXIS
  9. DEXAMETHASONE [Concomitant]
     Dosage: UNK

REACTIONS (5)
  - Bronchopulmonary aspergillosis [Unknown]
  - Pulmonary embolism [Unknown]
  - Lymphopenia [Unknown]
  - Nausea [Unknown]
  - Deep vein thrombosis [Unknown]
